FAERS Safety Report 7564326-5 (Version None)
Quarter: 2011Q2

REPORT INFORMATION
  Report Type: 
  Country: None (occurrence: None)
  Receive Date: 20110622
  Receipt Date: 20110609
  Transmission Date: 20111010
  Serious: Yes (Other)
  Sender: FDA-Public Use
  Company Number: PHHY2011DE51733

PATIENT

DRUGS (1)
  1. CLOZAPINE [Suspect]
     Indication: SCHIZOPHRENIA
     Dosage: 200 MG, QD
     Route: 048

REACTIONS (3)
  - BREAST CANCER [None]
  - POLYNEUROPATHY [None]
  - EOSINOPENIA [None]
